FAERS Safety Report 11416362 (Version 1)
Quarter: 2015Q3

REPORT INFORMATION
  Report Type: Spontaneous
  Country: US (occurrence: US)
  Receive Date: 20150825
  Receipt Date: 20150825
  Transmission Date: 20151125
  Serious: Yes (Hospitalization)
  Sender: FDA-Public Use
  Company Number: US-PFIZER INC-2015262128

PATIENT
  Age: 39 Year
  Sex: Female

DRUGS (5)
  1. MESANTOIN [Concomitant]
     Active Substance: MEPHENYTOIN
     Indication: PETIT MAL EPILEPSY
     Dosage: 0.1 G, 3X/DAY
     Dates: start: 19590712, end: 19590720
  2. PYRIBENZAMINE [Concomitant]
     Active Substance: TRIPELENNAMINE HYDROCHLORIDE
     Dosage: 50 MG, 3X/DAY
     Dates: start: 19590722, end: 19590725
  3. MULTIVITAMINS [Concomitant]
     Active Substance: VITAMINS
     Dosage: UNK
  4. ACETYLSALICYLIC ACID [Concomitant]
     Active Substance: ASPIRIN
     Dosage: UNK
  5. PHENYTOIN. [Suspect]
     Active Substance: PHENYTOIN
     Indication: PETIT MAL EPILEPSY
     Dosage: 100 MG, 4X/DAY
     Dates: start: 19590720, end: 19590722

REACTIONS (4)
  - Pyrexia [Recovered/Resolved]
  - Rash erythematous [Recovered/Resolved]
  - Rash maculo-papular [Recovered/Resolved]
  - Thrombocytopenic purpura [Recovered/Resolved]
